FAERS Safety Report 22340482 (Version 2)
Quarter: 2023Q2

REPORT INFORMATION
  Report Type: Spontaneous
  Country: DE (occurrence: DE)
  Receive Date: 20230518
  Receipt Date: 20230523
  Transmission Date: 20230721
  Serious: Yes (Other)
  Sender: FDA-Public Use
  Company Number: DE-DCGMA-23201024

PATIENT
  Age: 22 Year
  Sex: Female

DRUGS (2)
  1. GLATIRAMER [Suspect]
     Active Substance: GLATIRAMER
     Indication: Multiple sclerosis
     Dosage: 40 MILLIGRAM
     Route: 058
     Dates: start: 202109, end: 202204
  2. OFATUMUMAB [Suspect]
     Active Substance: OFATUMUMAB
     Indication: Multiple sclerosis
     Dosage: 20 MILLIGRAM
     Route: 058
     Dates: start: 202205

REACTIONS (1)
  - Borderline ovarian tumour [Unknown]

NARRATIVE: CASE EVENT DATE: 20221101
